FAERS Safety Report 25202716 (Version 1)
Quarter: 2025Q2

REPORT INFORMATION
  Report Type: Spontaneous
  Country: US (occurrence: None)
  Receive Date: 20250416
  Receipt Date: 20250416
  Transmission Date: 20250716
  Serious: Yes (Hospitalization)
  Sender: FDA-CTU
  Company Number: None

PATIENT
  Age: 55 Year
  Sex: Female
  Weight: 55.5 kg

DRUGS (3)
  1. CYTARABINE [Suspect]
     Active Substance: CYTARABINE
     Dates: end: 20250310
  2. SPRYCEL [Suspect]
     Active Substance: DASATINIB
     Dates: end: 20250321
  3. METHOTREXATE [Suspect]
     Active Substance: METHOTREXATE
     Dates: end: 20250308

REACTIONS (3)
  - Anaemia [None]
  - Dyspepsia [None]
  - Platelet count decreased [None]

NARRATIVE: CASE EVENT DATE: 20250321
